FAERS Safety Report 12876458 (Version 2)
Quarter: 2016Q4

REPORT INFORMATION
  Report Type: Spontaneous
  Country: FR (occurrence: FR)
  Receive Date: 20161024
  Receipt Date: 20161202
  Transmission Date: 20170207
  Serious: Yes (Other)
  Sender: FDA-Public Use
  Company Number: FR-PFIZER INC-2016488554

PATIENT
  Age: 53 Year
  Sex: Female

DRUGS (2)
  1. UTROGESTAN [Suspect]
     Active Substance: PROGESTERONE
  2. SALAZOPYRINE [Suspect]
     Active Substance: SULFASALAZINE
     Dosage: UNK
     Dates: start: 1996

REACTIONS (3)
  - Drug cross-reactivity [Not Recovered/Not Resolved]
  - Angioedema [Not Recovered/Not Resolved]
  - Drug hypersensitivity [Not Recovered/Not Resolved]
